FAERS Safety Report 9669907 (Version 2)
Quarter: 2014Q1

REPORT INFORMATION
  Report Type: Spontaneous
  Country: US (occurrence: US)
  Receive Date: 20131105
  Receipt Date: 20140210
  Transmission Date: 20141002
  Serious: Yes (Hospitalization)
  Sender: FDA-Public Use
  Company Number: US-BAYER-2013-133464

PATIENT
  Age: 29 Year
  Sex: Female
  Weight: 46.26 kg

DRUGS (2)
  1. MIRENA [Suspect]
     Indication: CONTRACEPTION
     Dosage: 20 MCG/24HR, CONT
     Route: 015
     Dates: start: 20090416, end: 20120209
  2. IBUPROFEN [Concomitant]

REACTIONS (18)
  - Uterine perforation [None]
  - Injury [None]
  - Pain [None]
  - Emotional distress [None]
  - Palpitations [None]
  - Abdominal pain lower [None]
  - Menorrhagia [None]
  - Menstrual disorder [None]
  - Fear [None]
  - Depression [None]
  - Anxiety [None]
  - Panic reaction [None]
  - Mood swings [None]
  - Anger [None]
  - Scar [None]
  - Impatience [None]
  - Device issue [None]
  - Device dislocation [None]
